FAERS Safety Report 6218670-4 (Version None)
Quarter: 2009Q2

REPORT INFORMATION
  Report Type: 
  Country: None (occurrence: None)
  Receive Date: 20090608
  Receipt Date: 20090527
  Transmission Date: 20091009
  Serious: Yes (Other)
  Sender: FDA-Public Use
  Company Number: ES-PFIZER INC-2009214267

PATIENT
  Age: 25 Year

DRUGS (1)
  1. TOVIAZ [Suspect]

REACTIONS (2)
  - HYPOAESTHESIA ORAL [None]
  - SPEECH DISORDER [None]
